FAERS Safety Report 26132195 (Version 1)
Quarter: 2025Q4

REPORT INFORMATION
  Report Type: Spontaneous
  Country: US (occurrence: None)
  Receive Date: 20251205
  Receipt Date: 20251205
  Transmission Date: 20260118
  Serious: No
  Sender: FDA-CTU
  Company Number: None

PATIENT
  Age: 63 Year
  Sex: Female

DRUGS (2)
  1. AMBRISENTAN [Suspect]
     Active Substance: AMBRISENTAN
     Indication: Pulmonary arterial hypertension
     Dosage: FREQUENCY : DAILY;
     Route: 048
     Dates: start: 20240409
  2. SILDENAFIL CITRATE [Concomitant]
     Active Substance: SILDENAFIL CITRATE

REACTIONS (8)
  - Malaise [None]
  - Affective disorder [None]
  - Antisocial personality disorder [None]
  - Suicidal ideation [None]
  - Fluid retention [None]
  - Migraine [None]
  - Hypotension [None]
  - Oxygen saturation decreased [None]

NARRATIVE: CASE EVENT DATE: 20251031
